FAERS Safety Report 9646158 (Version 2)
Quarter: 2013Q4

REPORT INFORMATION
  Report Type: Report from Study
  Country: US (occurrence: US)
  Receive Date: 20131025
  Receipt Date: 20131025
  Transmission Date: 20140711
  Serious: Yes (Other)
  Sender: FDA-Public Use
  Company Number: US-ASTRAZENECA-2013SE67193

PATIENT
  Age: 77 Year
  Sex: Female

DRUGS (6)
  1. CRESTOR [Suspect]
     Indication: BLOOD CHOLESTEROL
     Route: 048
  2. CRESTOR [Suspect]
     Indication: BLOOD CHOLESTEROL
     Route: 048
  3. CRESTOR [Suspect]
     Indication: BLOOD CHOLESTEROL
     Dosage: 10 MG MONDAY,WEDNESDAY,FRIDAY
     Route: 048
  4. RANEXA [Concomitant]
     Indication: CHEST PAIN
  5. RANEXA [Concomitant]
     Indication: DYSPNOEA
  6. RANEXA [Concomitant]
     Indication: ANGINA PECTORIS

REACTIONS (9)
  - Angina pectoris [Unknown]
  - Muscular weakness [Not Recovered/Not Resolved]
  - Drug intolerance [Unknown]
  - Pain in extremity [Not Recovered/Not Resolved]
  - Back pain [Unknown]
  - Blood cholesterol abnormal [Not Recovered/Not Resolved]
  - Chest pain [Unknown]
  - Dyspnoea [Unknown]
  - Off label use [Not Recovered/Not Resolved]
